FAERS Safety Report 25179966 (Version 1)
Quarter: 2025Q2

REPORT INFORMATION
  Report Type: Spontaneous
  Country: SE (occurrence: SE)
  Receive Date: 20250409
  Receipt Date: 20250409
  Transmission Date: 20250717
  Serious: Yes (Disabling)
  Sender: TEVA
  Company Number: None

PATIENT
  Age: 16 Year
  Sex: Female
  Weight: 85 kg

DRUGS (3)
  1. QUETIAPINE [Suspect]
     Active Substance: QUETIAPINE
     Indication: Insomnia
     Route: 065
     Dates: start: 20230512, end: 20250129
  2. QUETIAPINE [Suspect]
     Active Substance: QUETIAPINE
     Indication: Insomnia
     Dosage: 50 MG: 2 TGL 20
     Route: 065
     Dates: start: 20240101, end: 20250129
  3. OLANZAPINE [Suspect]
     Active Substance: OLANZAPINE
     Indication: Anxiety
     Route: 065
     Dates: start: 20250129, end: 20250310

REACTIONS (6)
  - Depression [Recovering/Resolving]
  - Weight increased [Recovering/Resolving]
  - Anxiety [Recovering/Resolving]
  - Skin striae [Recovering/Resolving]
  - Anxiety [Recovering/Resolving]
  - Hunger [Recovering/Resolving]

NARRATIVE: CASE EVENT DATE: 20240202
